FAERS Safety Report 9415644 (Version 2)
Quarter: 2013Q3

REPORT INFORMATION
  Report Type: Spontaneous
  Country: US (occurrence: US)
  Receive Date: 20130723
  Receipt Date: 20130731
  Transmission Date: 20140515
  Serious: Yes (Hospitalization, Disabling)
  Sender: FDA-Public Use
  Company Number: US-US-EMD SERONO, INC.-7224979

PATIENT
  Age: 39 Year
  Sex: Female
  Weight: 61 kg

DRUGS (5)
  1. GONAL-F [Suspect]
     Indication: INFERTILITY
     Dates: start: 20130701, end: 20130710
  2. CETROTIDE (CETRORELIX ACETATE FOR INJECTION) [Suspect]
     Indication: INFERTILITY
     Dates: start: 20130705, end: 20130710
  3. MENOPUR /01277604/ [Suspect]
     Indication: PRODUCT USED FOR UNKNOWN INDICATION
  4. WELLBUTRIN                         /00700501/ [Concomitant]
     Indication: DEPRESSION
  5. ZOLOFT                             /01011401/ [Concomitant]
     Indication: DEPRESSION

REACTIONS (4)
  - Hepatosplenomegaly [Unknown]
  - Liver function test abnormal [Unknown]
  - Pyrexia [Recovered/Resolved]
  - Rash [Unknown]
